FAERS Safety Report 24653355 (Version 2)
Quarter: 2025Q1

REPORT INFORMATION
  Report Type: Spontaneous
  Country: US (occurrence: US)
  Receive Date: 20241122
  Receipt Date: 20250113
  Transmission Date: 20250408
  Serious: Yes (Other)
  Sender: REGENERON
  Company Number: US-REGENERON PHARMACEUTICALS, INC.-2024-158880

PATIENT
  Age: 63 Year
  Sex: Male

DRUGS (1)
  1. CEMIPLIMAB [Suspect]
     Active Substance: CEMIPLIMAB
     Indication: Squamous cell carcinoma
     Route: 065

REACTIONS (3)
  - Tubulointerstitial nephritis [Unknown]
  - Renal tubular injury [Unknown]
  - Fibrillary glomerulonephritis [Unknown]
